FAERS Safety Report 18239373 (Version 2)
Quarter: 2024Q1

REPORT INFORMATION
  Report Type: Spontaneous
  Country: US (occurrence: US)
  Receive Date: 20200907
  Receipt Date: 20240117
  Transmission Date: 20240409
  Serious: No
  Sender: FDA-Public Use
  Company Number: US-009507513-2008USA014508

PATIENT
  Age: 70 Year
  Sex: Male

DRUGS (7)
  1. TEMODAR [Suspect]
     Active Substance: TEMOZOLOMIDE
     Indication: High-grade B-cell lymphoma
     Dosage: 400 MG AT BEDTIME FOR 4 DAYS 1 WEEK AFTER EVERY OTHER METHOTREXATE DOSE
  2. METHOTREXATE [Concomitant]
     Active Substance: METHOTREXATE
     Dosage: 7000 MG/M? EVERY OTHER WEEK FOR EIGHT DOSES
     Route: 042
  3. RITUXIMAB [Concomitant]
     Active Substance: RITUXIMAB
     Dosage: 375 MG/M? EVERY OTHER WEEK FOR SIX DOSES
  4. HYDROCORTISONE [Concomitant]
     Active Substance: HYDROCORTISONE
     Dosage: 10 MG AT 0800 H EVERY DAY
  5. HYDROCORTISONE [Concomitant]
     Active Substance: HYDROCORTISONE
     Dosage: 5 MG AT 1800 H EVERY DAY
  6. LEVOTHYROXINE SODIUM [Concomitant]
     Active Substance: LEVOTHYROXINE SODIUM
     Dosage: 88 ?G DAILY
  7. DESMOPRESSIN [Concomitant]
     Active Substance: DESMOPRESSIN
     Dosage: 50 ?G TWICE DAILY

REACTIONS (1)
  - Product use in unapproved indication [Unknown]
